FAERS Safety Report 6092379-2 (Version None)
Quarter: 2009Q1

REPORT INFORMATION
  Report Type: 
  Country: None (occurrence: None)
  Receive Date: 20090225
  Receipt Date: 20090216
  Transmission Date: 20090719
  Serious: Yes (Other)
  Sender: FDA-Public Use
  Company Number: BR-ABBOTT-09P-020-0557386-00

PATIENT
  Sex: Male
  Weight: 75 kg

DRUGS (3)
  1. AKINETON [Suspect]
     Indication: TREMOR
     Route: 048
     Dates: start: 20081101
  2. NEOZINE [Concomitant]
     Indication: SEDATIVE THERAPY
     Route: 048
  3. OLANZAPINE [Concomitant]
     Indication: SCHIZOPHRENIA
     Route: 048

REACTIONS (3)
  - AGGRESSION [None]
  - AGITATION [None]
  - ANTISOCIAL BEHAVIOUR [None]
